FAERS Safety Report 11966158 (Version 4)
Quarter: 2016Q3

REPORT INFORMATION
  Report Type: Spontaneous
  Country: US (occurrence: US)
  Receive Date: 20160127
  Receipt Date: 20160707
  Transmission Date: 20161109
  Serious: No
  Sender: FDA-Public Use
  Company Number: US-PFIZER INC-2016023617

PATIENT
  Age: 41 Year
  Sex: Female

DRUGS (2)
  1. LETROZOLE. [Concomitant]
     Active Substance: LETROZOLE
     Indication: BREAST CANCER
     Dosage: UNK
  2. IBRANCE [Suspect]
     Active Substance: PALBOCICLIB
     Indication: BREAST CANCER STAGE IV
     Dosage: 125 MG, CYCLIC (1 CAPSULE EVERY DAY FOR 21 DAYS ON AND 7 DAYS OFF)
     Route: 048

REACTIONS (7)
  - Migraine [Unknown]
  - White blood cell count decreased [Unknown]
  - Weight decreased [Unknown]
  - Night sweats [Unknown]
  - Hot flush [Unknown]
  - Stomatitis [Unknown]
  - Tongue disorder [Unknown]
